FAERS Safety Report 5857680-3 (Version None)
Quarter: 2008Q3

REPORT INFORMATION
  Report Type: 
  Country: None (occurrence: None)
  Receive Date: 20080825
  Receipt Date: 20080825
  Transmission Date: 20090109
  Serious: No
  Sender: FDA-Public Use
  Company Number: None

PATIENT
  Age: 54 Year
  Sex: Male
  Weight: 117.9 kg

DRUGS (1)
  1. ROSUVASTATIN [Suspect]
     Dosage: 20 MG EVERY DAY PO
     Route: 048
     Dates: start: 20070912, end: 20080519

REACTIONS (2)
  - ARTHRALGIA [None]
  - MYALGIA [None]
